FAERS Safety Report 7671739-X (Version None)
Quarter: 2011Q3

REPORT INFORMATION
  Report Type: 
  Country: None (occurrence: None)
  Receive Date: 20110809
  Receipt Date: 20110802
  Transmission Date: 20111222
  Serious: Yes (Other)
  Sender: FDA-Public Use
  Company Number: US-PFIZER INC-2011177462

PATIENT

DRUGS (3)
  1. LYRICA [Suspect]
     Dosage: 75 MG, 2X/DAY
  2. LYRICA [Suspect]
     Dosage: 75 MG, A DAY
  3. LYRICA [Suspect]
     Dosage: 150 MG, 2X/DAY

REACTIONS (6)
  - COGNITIVE DISORDER [None]
  - MEMORY IMPAIRMENT [None]
  - FIBROMYALGIA [None]
  - ACTIVITIES OF DAILY LIVING IMPAIRED [None]
  - MENTAL IMPAIRMENT [None]
  - BALANCE DISORDER [None]
